APPROVED DRUG PRODUCT: FUROSEMIDE
Active Ingredient: FUROSEMIDE
Strength: 10MG/ML
Dosage Form/Route: INJECTABLE;INJECTION
Application: A216860 | Product #001 | TE Code: AP
Applicant: MANKIND PHARMA LTD
Approved: Dec 16, 2022 | RLD: No | RS: No | Type: RX